FAERS Safety Report 22084230 (Version 2)
Quarter: 2023Q1

REPORT INFORMATION
  Report Type: Spontaneous
  Country: MX (occurrence: MX)
  Receive Date: 20230310
  Receipt Date: 20230320
  Transmission Date: 20230417
  Serious: No
  Sender: FDA-Public Use
  Company Number: MX-PFIZER INC-PV202300029170

PATIENT

DRUGS (1)
  1. ENBREL [Suspect]
     Active Substance: ETANERCEPT
     Dosage: UNK

REACTIONS (4)
  - Device mechanical issue [Unknown]
  - Device issue [Unknown]
  - Drug dose omission by device [Unknown]
  - Poor quality device used [Unknown]
